FAERS Safety Report 9979138 (Version 1)
Quarter: 2014Q1

REPORT INFORMATION
  Report Type: Report from Study
  Country: US (occurrence: US)
  Receive Date: 20140306
  Receipt Date: 20140306
  Transmission Date: 20141002
  Serious: No
  Sender: FDA-Public Use
  Company Number: US-ABBVIE-13P-163-1173693-00

PATIENT
  Age: 24 Year
  Sex: Male

DRUGS (4)
  1. HUMIRA [Suspect]
     Indication: CROHN^S DISEASE
     Dates: start: 20130924, end: 20131105
  2. WELLBUTRIN [Concomitant]
     Indication: DEPRESSION
  3. LIALDA [Concomitant]
     Indication: CROHN^S DISEASE
  4. MULTIVITAMIN [Concomitant]
     Indication: PRODUCT USED FOR UNKNOWN INDICATION

REACTIONS (4)
  - Nail bed infection [Recovering/Resolving]
  - Wound infection [Recovering/Resolving]
  - Impaired healing [Recovering/Resolving]
  - Upper respiratory tract infection [Recovering/Resolving]
